FAERS Safety Report 18233272 (Version 1)
Quarter: 2020Q3

REPORT INFORMATION
  Report Type: Spontaneous
  Country: US (occurrence: US)
  Receive Date: 20200904
  Receipt Date: 20200904
  Transmission Date: 20201103
  Serious: No
  Sender: FDA-Public Use
  Company Number: None

PATIENT
  Age: 5 Month
  Sex: Female
  Weight: 6.75 kg

DRUGS (3)
  1. METFORMIN EXTENDED RELEASE [Suspect]
     Active Substance: METFORMIN HYDROCHLORIDE
     Indication: MATERNAL CONDITION AFFECTING FOETUS
     Dosage: ?          QUANTITY:2 TABLET(S);?
     Route: 048
  2. PEPCID [Concomitant]
     Active Substance: FAMOTIDINE
  3. VITAMIN D DROPS [Concomitant]

REACTIONS (5)
  - Foetal exposure during pregnancy [None]
  - Recalled product administered [None]
  - Maternal condition affecting foetus [None]
  - Product contamination [None]
  - Carcinogenicity [None]

NARRATIVE: CASE EVENT DATE: 20191201
